FAERS Safety Report 8036273-6 (Version None)
Quarter: 2012Q1

REPORT INFORMATION
  Report Type: 
  Country: None (occurrence: None)
  Receive Date: 20120111
  Receipt Date: 20111228
  Transmission Date: 20120608
  Serious: Yes (Disabling)
  Sender: FDA-Public Use
  Company Number: JP-UCBSA-048508

PATIENT
  Age: 18 Year
  Sex: Female
  Weight: 54 kg

DRUGS (5)
  1. VEPESID [Suspect]
     Indication: BRAIN NEOPLASM
     Dosage: DAILY DOSE: 350 MG
     Route: 041
     Dates: start: 20110725, end: 20110727
  2. CARBOPLATIN [Suspect]
     Indication: BRAIN NEOPLASM
     Dosage: DAILY DOSE : 630 MG
     Route: 041
     Dates: start: 20110722, end: 20110724
  3. DEPAKENE [Concomitant]
     Indication: COMPLEX PARTIAL SEIZURES
     Dosage: DAILY DOSE: 800 MG
     Route: 048
     Dates: start: 20110716, end: 20111120
  4. BETAMETHASONE [Concomitant]
     Indication: BRAIN NEOPLASM
     Dosage: DAILY DOSE: 2 MG
     Route: 048
     Dates: end: 20110729
  5. KEPPRA [Suspect]
     Indication: COMPLEX PARTIAL SEIZURES
     Route: 048
     Dates: start: 20110716, end: 20111120

REACTIONS (1)
  - NEOPLASM PROGRESSION [None]
